FAERS Safety Report 10192193 (Version 1)
Quarter: 2014Q2

REPORT INFORMATION
  Report Type: Spontaneous
  Country: US (occurrence: US)
  Receive Date: 20140523
  Receipt Date: 20140523
  Transmission Date: 20141212
  Serious: No
  Sender: FDA-Public Use
  Company Number: US-ASTRAZENECA-2013SE51445

PATIENT
  Age: 55 Year
  Sex: Female
  Weight: 61.2 kg

DRUGS (2)
  1. PULMICORT FLEXHALER [Suspect]
     Indication: ASTHMA
     Route: 055
  2. LEVOTHYROXINE [Concomitant]
     Dosage: NR

REACTIONS (3)
  - Dyspnoea [Not Recovered/Not Resolved]
  - Drug prescribing error [Unknown]
  - Intentional product misuse [Unknown]
